FAERS Safety Report 5649012-0 (Version None)
Quarter: 2008Q1

REPORT INFORMATION
  Report Type: 
  Country: None (occurrence: None)
  Receive Date: 20080304
  Receipt Date: 20080228
  Transmission Date: 20080703
  Serious: Yes (Hospitalization)
  Sender: FDA-Public Use
  Company Number: PH-WYE-H02670308

PATIENT
  Age: 31 Year
  Sex: Male

DRUGS (7)
  1. SIROLIMUS [Suspect]
     Indication: RENAL TRANSPLANT
     Route: 048
     Dates: start: 20080129, end: 20080101
  2. SIROLIMUS [Suspect]
     Route: 048
     Dates: start: 20080101
  3. PREDNISONE TAB [Concomitant]
     Indication: RENAL TRANSPLANT
     Route: 048
  4. LOSARTAN POTASSIUM [Concomitant]
     Indication: HYPERTENSION
     Route: 048
  5. CELLCEPT [Concomitant]
     Indication: RENAL TRANSPLANT
     Route: 048
     Dates: start: 20050101
  6. FENOFIBRATE [Suspect]
     Indication: HYPERCHOLESTEROLAEMIA
     Dates: end: 20080101
  7. RANITIDINE [Concomitant]
     Indication: HYPERCHLORHYDRIA
     Route: 048

REACTIONS (1)
  - RHABDOMYOLYSIS [None]
